FAERS Safety Report 7274975-X (Version None)
Quarter: 2011Q1

REPORT INFORMATION
  Report Type: 
  Country: None (occurrence: None)
  Receive Date: 20110203
  Receipt Date: 20110203
  Transmission Date: 20110831
  Serious: Yes (Other)
  Sender: FDA-Public Use
  Company Number: None

PATIENT
  Sex: Female
  Weight: 57.1532 kg

DRUGS (1)
  1. TOPCARE ALCOHOL PREP PADS TRIAD GROUP [Suspect]
     Indication: INFECTION PROPHYLAXIS
     Dosage: 1 PAD 1 DAILY INJECTION SITE
     Dates: start: 20101231, end: 20110103

REACTIONS (6)
  - PRODUCT QUALITY ISSUE [None]
  - INJECTION SITE PAIN [None]
  - INJECTION SITE CELLULITIS [None]
  - INJECTION SITE HAEMATOMA [None]
  - PRODUCT CONTAMINATION MICROBIAL [None]
  - INJECTION SITE MASS [None]
